FAERS Safety Report 9780890 (Version 1)
Quarter: 2013Q4

REPORT INFORMATION
  Report Type: Spontaneous
  Country: IT (occurrence: IT)
  Receive Date: 20131224
  Receipt Date: 20131224
  Transmission Date: 20140711
  Serious: Yes (Hospitalization)
  Sender: FDA-Public Use
  Company Number: IT-UCBSA-106223

PATIENT
  Age: 4 Month
  Sex: Male

DRUGS (1)
  1. XYZAL [Suspect]
     Dosage: 20ML BOTTLE-5MG/ML, 21 DROPS TOTAL
     Route: 048
     Dates: start: 20120718, end: 20120718

REACTIONS (1)
  - Wrong drug administered [Recovered/Resolved]
